FAERS Safety Report 11431857 (Version 5)
Quarter: 2015Q4

REPORT INFORMATION
  Report Type: Spontaneous
  Country: US (occurrence: US)
  Receive Date: 20150828
  Receipt Date: 20151213
  Transmission Date: 20160304
  Serious: Yes (Hospitalization, Other)
  Sender: FDA-Public Use
  Company Number: US-ASTRAZENECA-2011BM11829

PATIENT
  Age: 69 Year
  Sex: Female
  Weight: 73.9 kg

DRUGS (28)
  1. FORXIGA [Suspect]
     Active Substance: DAPAGLIFLOZIN
     Indication: TYPE 2 DIABETES MELLITUS
     Route: 048
     Dates: start: 201504
  2. BYETTA [Suspect]
     Active Substance: EXENATIDE
     Indication: INSULIN-REQUIRING TYPE 2 DIABETES MELLITUS
     Dosage: 5 MCG PEN
     Route: 058
  3. LANTUS [Concomitant]
     Active Substance: INSULIN GLARGINE
     Indication: INSULIN-REQUIRING TYPE 2 DIABETES MELLITUS
     Route: 058
     Dates: start: 201507
  4. HUMALOG [Concomitant]
     Active Substance: INSULIN LISPRO
     Indication: INSULIN-REQUIRING TYPE 2 DIABETES MELLITUS
     Dosage: 3 UNITS TID TO 6 UNITS TID
     Route: 058
     Dates: start: 201207
  5. NOVOLOG [Concomitant]
     Active Substance: INSULIN ASPART
     Dosage: 70/30, UNK
  6. REGLAN [Concomitant]
     Active Substance: METOCLOPRAMIDE HYDROCHLORIDE
     Indication: NAUSEA
  7. OXYBUTININ [Concomitant]
     Active Substance: OXYBUTYNIN\OXYBUTYNIN CHLORIDE
     Indication: URINARY BLADDER RUPTURE
     Route: 048
  8. SYMLIN [Suspect]
     Active Substance: PRAMLINTIDE ACETATE
     Indication: DIABETES MELLITUS
     Dosage: 30MCG TID
     Route: 058
     Dates: start: 20120722, end: 20120723
  9. FORXIGA [Suspect]
     Active Substance: DAPAGLIFLOZIN
     Indication: TYPE 2 DIABETES MELLITUS
     Route: 048
     Dates: start: 201507
  10. FORXIGA [Suspect]
     Active Substance: DAPAGLIFLOZIN
     Indication: TYPE 2 DIABETES MELLITUS
     Route: 048
  11. BYETTA [Suspect]
     Active Substance: EXENATIDE
     Indication: INSULIN-REQUIRING TYPE 2 DIABETES MELLITUS
     Route: 058
     Dates: start: 200807
  12. SYMLIN [Suspect]
     Active Substance: PRAMLINTIDE ACETATE
     Indication: DIABETES MELLITUS
     Dosage: 15MCG TID
     Route: 058
     Dates: start: 20120719, end: 20120721
  13. LANTUS [Concomitant]
     Active Substance: INSULIN GLARGINE
     Indication: INSULIN-REQUIRING TYPE 2 DIABETES MELLITUS
     Route: 058
  14. BYETTA [Suspect]
     Active Substance: EXENATIDE
     Indication: INSULIN-REQUIRING TYPE 2 DIABETES MELLITUS
     Dosage: 10 MCG BID
     Route: 058
     Dates: start: 2009, end: 2011
  15. VICTOZA [Concomitant]
     Active Substance: LIRAGLUTIDE
     Indication: INSULIN-REQUIRING TYPE 2 DIABETES MELLITUS
     Dosage: UNK
     Route: 058
     Dates: start: 2011, end: 201507
  16. METFORMIN [Concomitant]
     Active Substance: METFORMIN HYDROCHLORIDE
     Indication: TYPE 1 DIABETES MELLITUS
     Route: 048
  17. METFORMIN [Concomitant]
     Active Substance: METFORMIN HYDROCHLORIDE
     Indication: TYPE 2 DIABETES MELLITUS
     Route: 048
  18. BYETTA [Suspect]
     Active Substance: EXENATIDE
     Indication: INSULIN-REQUIRING TYPE 2 DIABETES MELLITUS
     Route: 058
     Dates: end: 201204
  19. HUMALOG [Concomitant]
     Active Substance: INSULIN LISPRO
     Indication: INSULIN-REQUIRING TYPE 2 DIABETES MELLITUS
     Dosage: AS REQUIRED,
     Route: 058
  20. LEVOTHYROXINE. [Concomitant]
     Active Substance: LEVOTHYROXINE
     Indication: THYROID DISORDER
     Route: 048
  21. BYETTA [Suspect]
     Active Substance: EXENATIDE
     Indication: INSULIN-REQUIRING TYPE 2 DIABETES MELLITUS
     Route: 058
     Dates: start: 201208
  22. BYETTA [Suspect]
     Active Substance: EXENATIDE
     Indication: INSULIN-REQUIRING TYPE 2 DIABETES MELLITUS
     Route: 058
  23. OMEPRAZOLE. [Suspect]
     Active Substance: OMEPRAZOLE
     Route: 048
  24. NOVOLOG [Concomitant]
     Active Substance: INSULIN ASPART
  25. LANTUS [Concomitant]
     Active Substance: INSULIN GLARGINE
     Indication: INSULIN-REQUIRING TYPE 2 DIABETES MELLITUS
     Route: 058
     Dates: start: 201207
  26. LANTUS [Concomitant]
     Active Substance: INSULIN GLARGINE
     Indication: INSULIN-REQUIRING TYPE 2 DIABETES MELLITUS
     Route: 058
     Dates: start: 201507
  27. HUMALOG [Concomitant]
     Active Substance: INSULIN LISPRO
     Indication: INSULIN-REQUIRING TYPE 2 DIABETES MELLITUS
     Dosage: AS REQUIRED, 4 ML
     Route: 058
     Dates: start: 201507
  28. VITAMIN B3 [Concomitant]
     Active Substance: NIACIN
     Indication: ILL-DEFINED DISORDER
     Route: 048

REACTIONS (32)
  - Blood potassium decreased [Unknown]
  - Fatigue [Unknown]
  - Blood glucose abnormal [Recovered/Resolved]
  - Blood glucose decreased [Recovered/Resolved]
  - Glycosylated haemoglobin increased [Unknown]
  - Glomerular filtration rate decreased [Unknown]
  - Insomnia [Unknown]
  - Impaired insulin secretion [Unknown]
  - Insulin C-peptide decreased [Not Recovered/Not Resolved]
  - Decreased appetite [Not Recovered/Not Resolved]
  - Limb discomfort [Unknown]
  - Hunger [Recovered/Resolved]
  - Abdominal discomfort [Recovering/Resolving]
  - Weight decreased [Unknown]
  - Maculopathy [Unknown]
  - Dehydration [Unknown]
  - Diabetic ketoacidosis [Recovered/Resolved]
  - Weight increased [Unknown]
  - Loss of consciousness [Unknown]
  - Nausea [Unknown]
  - Vomiting [Recovered/Resolved]
  - Blood sodium decreased [Unknown]
  - Intentional product misuse [Not Recovered/Not Resolved]
  - Blood glucose increased [Not Recovered/Not Resolved]
  - Constipation [Unknown]
  - Off label use [Not Recovered/Not Resolved]
  - Drug effect decreased [Unknown]
  - Urine odour abnormal [Not Recovered/Not Resolved]
  - Lipids increased [Unknown]
  - Nervousness [Not Recovered/Not Resolved]
  - Dyspepsia [Unknown]
  - Headache [Not Recovered/Not Resolved]

NARRATIVE: CASE EVENT DATE: 200907
